FAERS Safety Report 18600404 (Version 1)
Quarter: 2020Q4

REPORT INFORMATION
  Report Type: Spontaneous
  Country: FI (occurrence: FI)
  Receive Date: 20201210
  Receipt Date: 20201210
  Transmission Date: 20210114
  Serious: Yes (Other)
  Sender: FDA-Public Use
  Company Number: FI-PFIZER INC-2020484487

PATIENT
  Age: 26 Year
  Sex: Female

DRUGS (5)
  1. RIVATRIL [Suspect]
     Active Substance: CLONAZEPAM
     Dosage: UNK
  2. CYMBALTA [Suspect]
     Active Substance: DULOXETINE HYDROCHLORIDE
     Dosage: UNK
  3. MEMANTINE. [Suspect]
     Active Substance: MEMANTINE
     Dosage: 1D, 20MG
  4. VOXRA [Suspect]
     Active Substance: BUPROPION HYDROCHLORIDE
     Dosage: 600 MG
  5. LYRICA [Suspect]
     Active Substance: PREGABALIN
     Dosage: 1D, 300MG

REACTIONS (4)
  - Cardiac disorder [Unknown]
  - Myocardial infarction [Unknown]
  - Seizure [Unknown]
  - Heart rate increased [Unknown]
